FAERS Safety Report 8966038 (Version 2)
Quarter: 2012Q4

REPORT INFORMATION
  Report Type: 
  Country: BR (occurrence: BR)
  Receive Date: 20121217
  Receipt Date: 20121224
  Transmission Date: 20130627
  Serious: Yes (Hospitalization, Other)
  Sender: FDA-Public Use
  Company Number: BR-AMGEN-BRASP2012080629

PATIENT
  Age: 83 Year
  Sex: Female
  Weight: 41 kg

DRUGS (3)
  1. ENBREL [Suspect]
     Indication: RHEUMATOID ARTHRITIS
     Dosage: 50 mg, once weekly
     Route: 058
     Dates: start: 201208, end: 201209
  2. METHOTREXATE [Concomitant]
     Dosage: UNK
  3. PREDNISONE [Concomitant]
     Dosage: UNK

REACTIONS (6)
  - Urinary tract infection [Unknown]
  - Gastrointestinal infection [Unknown]
  - Immunodeficiency [Unknown]
  - Femur fracture [Unknown]
  - Pyrexia [Unknown]
  - Device related infection [Unknown]
